FAERS Safety Report 14759609 (Version 1)
Quarter: 2018Q2

REPORT INFORMATION
  Report Type: Spontaneous
  Country: CA (occurrence: CA)
  Receive Date: 20180413
  Receipt Date: 20180413
  Transmission Date: 20180711
  Serious: Yes (Hospitalization)
  Sender: FDA-Public Use
  Company Number: CA-JNJFOC-20180408483

PATIENT
  Age: 3 Decade
  Sex: Female

DRUGS (10)
  1. DILAUDID [Concomitant]
     Active Substance: HYDROMORPHONE HYDROCHLORIDE
     Route: 065
  2. ASACOL [Concomitant]
     Active Substance: MESALAMINE
     Route: 048
     Dates: start: 20180319
  3. IRON [Concomitant]
     Active Substance: IRON
     Dosage: TAPERED DOSE
     Route: 048
     Dates: start: 20180319
  4. INFLIXIMAB [Suspect]
     Active Substance: INFLIXIMAB
     Indication: COLITIS ULCERATIVE
     Route: 042
     Dates: start: 20171219
  5. APO-PREDNISONE [Concomitant]
     Active Substance: PREDNISONE
     Dosage: TAPERED DOSE
     Route: 065
     Dates: start: 20180319
  6. TYLENOL [Concomitant]
     Active Substance: ACETAMINOPHEN
     Route: 065
  7. REMICADE [Suspect]
     Active Substance: INFLIXIMAB
     Indication: PRODUCT USED FOR UNKNOWN INDICATION
     Route: 042
     Dates: start: 201712
  8. FERROUS FUMARATE [Concomitant]
     Active Substance: FERROUS FUMARATE
     Route: 065
  9. GRAVOL [Concomitant]
     Active Substance: DIMENHYDRINATE
     Route: 065
  10. NYSTATIN. [Concomitant]
     Active Substance: NYSTATIN
     Dosage: TAPERED DOSE
     Route: 048
     Dates: start: 20180326

REACTIONS (5)
  - Abdominal pain [Unknown]
  - Haematochezia [Unknown]
  - Diarrhoea [Unknown]
  - Oral fungal infection [Not Recovered/Not Resolved]
  - Gastrointestinal infection [Unknown]

NARRATIVE: CASE EVENT DATE: 20180319
